FAERS Safety Report 18226985 (Version 4)
Quarter: 2022Q1

REPORT INFORMATION
  Report Type: Other
  Country: US (occurrence: US)
  Receive Date: 20200903
  Receipt Date: 20220224
  Transmission Date: 20220423
  Serious: Yes (Other)
  Sender: FDA-Public Use
  Company Number: US-INTERCEPT-PM2020001822

PATIENT
  Age: 76 Year
  Sex: Female
  Weight: 50.34 kg

DRUGS (23)
  1. OCALIVA [Suspect]
     Active Substance: OBETICHOLIC ACID
     Indication: Primary biliary cholangitis
     Dosage: 10 MG, QD
     Route: 048
     Dates: start: 2018
  2. URSODIOL [Concomitant]
     Active Substance: URSODIOL
  3. CLINDAMYCIN HYDROCHLORIDE [Concomitant]
     Active Substance: CLINDAMYCIN HYDROCHLORIDE
  4. VITAMIN B12 [Concomitant]
     Active Substance: CYANOCOBALAMIN
  5. BIOTIN [Concomitant]
     Active Substance: BIOTIN
  6. PROBIOTICS NOS [Concomitant]
     Active Substance: PROBIOTICS NOS
  7. CALCIUM [Concomitant]
     Active Substance: CALCIUM
  8. PHENERGAN [Concomitant]
     Active Substance: PROMETHAZINE HYDROCHLORIDE
  9. MELATONIN [Concomitant]
     Active Substance: MELATONIN
  10. COLESTIPOL HYDROCHLORIDE [Concomitant]
     Active Substance: COLESTIPOL HYDROCHLORIDE
  11. VICODIN [Concomitant]
     Active Substance: ACETAMINOPHEN\HYDROCODONE BITARTRATE
  12. DIPHENHYDRAMINE HYDROCHLORIDE [Concomitant]
     Active Substance: DIPHENHYDRAMINE HYDROCHLORIDE
  13. MULTIVITAMIN                       /00097801/ [Concomitant]
  14. GABAPENTIN [Concomitant]
     Active Substance: GABAPENTIN
  15. WELLBUTRIN [Concomitant]
     Active Substance: BUPROPION HYDROCHLORIDE
  16. IRON [Concomitant]
     Active Substance: IRON
  17. VITAMIN D3 [Concomitant]
     Active Substance: CHOLECALCIFEROL
  18. EVENING PRIMROSE [Concomitant]
  19. NEURIVA BRAIN PERFORMANCE [Concomitant]
  20. PROLIA [Concomitant]
     Active Substance: DENOSUMAB
  21. REFRESH CELLUVISC [Concomitant]
     Active Substance: CARBOXYMETHYLCELLULOSE SODIUM
  22. ACYCLOVIR SODIUM [Concomitant]
     Active Substance: ACYCLOVIR SODIUM
  23. VITAMIN D2 [Concomitant]
     Active Substance: ERGOCALCIFEROL

REACTIONS (7)
  - Retinal operation [Recovered/Resolved]
  - Abdominal operation [Recovering/Resolving]
  - Retinal tear [Recovering/Resolving]
  - Ascites [Recovering/Resolving]
  - Visual impairment [Unknown]
  - Intraocular lens implant [Recovered/Resolved]
  - Blood calcium decreased [Unknown]

NARRATIVE: CASE EVENT DATE: 20200805
